FAERS Safety Report 15811934 (Version 1)
Quarter: 2019Q1

REPORT INFORMATION
  Report Type: Spontaneous
  Country: US (occurrence: US)
  Receive Date: 20190111
  Receipt Date: 20190111
  Transmission Date: 20190417
  Serious: Yes (Hospitalization)
  Sender: FDA-Public Use
  Company Number: US-TERSERA THERAPEUTICS LLC-2019TRS000003

PATIENT

DRUGS (4)
  1. PRIALT [Suspect]
     Active Substance: ZICONOTIDE ACETATE
     Indication: LUMBAR SPINAL STENOSIS
  2. PRIALT [Suspect]
     Active Substance: ZICONOTIDE ACETATE
     Indication: INTERVERTEBRAL DISC DEGENERATION
     Dosage: 1.311 MCG, QD (EACH DAY)
     Dates: start: 2016
  3. PRIALT [Suspect]
     Active Substance: ZICONOTIDE ACETATE
     Indication: SPINAL OSTEOARTHRITIS
  4. PRIALT [Suspect]
     Active Substance: ZICONOTIDE ACETATE
     Indication: PAIN

REACTIONS (1)
  - Pneumonia [Unknown]
